FAERS Safety Report 9322573 (Version 1)
Quarter: 2013Q2

REPORT INFORMATION
  Report Type: Spontaneous
  Country: US (occurrence: US)
  Receive Date: 20130531
  Receipt Date: 20130531
  Transmission Date: 20140414
  Serious: No
  Sender: FDA-Public Use
  Company Number: US-PFIZER INC-2013166949

PATIENT
  Age: 71 Year
  Sex: Female
  Weight: 95.24 kg

DRUGS (8)
  1. TORISEL [Suspect]
     Indication: RENAL CELL CARCINOMA
     Dosage: 10 MG, 1X/DAY
     Dates: start: 2012
  2. TORISEL [Suspect]
     Dosage: 15 MG, 1X/DAY
  3. TORISEL [Suspect]
     Dosage: 20 MG, UNK
  4. TORISEL [Suspect]
     Dosage: 25 MG, 1X/DAY
  5. TORISEL [Suspect]
     Dosage: 20 MG, 1X/DAY
     Dates: end: 20130501
  6. HUMALOG [Concomitant]
     Indication: DIABETES MELLITUS
     Dosage: UNK
  7. LANTUS [Concomitant]
     Indication: DIABETES MELLITUS
     Dosage: UNK
  8. COREG [Concomitant]
     Indication: HYPERTENSION
     Dosage: 25 MG, 2X/DAY

REACTIONS (2)
  - Disease progression [Unknown]
  - Renal cell carcinoma [Unknown]
